FAERS Safety Report 7801449-7 (Version None)
Quarter: 2011Q4

REPORT INFORMATION
  Report Type: 
  Country: None (occurrence: None)
  Receive Date: 20111006
  Receipt Date: 20111006
  Transmission Date: 20120403
  Serious: Yes (Hospitalization)
  Sender: FDA-Public Use
  Company Number: None

PATIENT
  Age: 91 Year
  Sex: Male
  Weight: 72.6 kg

DRUGS (10)
  1. COUMADIN [Suspect]
     Indication: ATRIAL FIBRILLATION
     Dosage: 4 MG DAILY PO CHRONIC
     Route: 048
  2. DOXAZOSIN MESYLATE [Concomitant]
  3. TYLENOL-500 [Concomitant]
  4. LANOXIN [Suspect]
     Indication: ATRIAL FIBRILLATION
     Dosage: 125 MCG DAILY PO CHRONIC
     Route: 048
  5. ATENOLOL [Concomitant]
  6. VIT D [Concomitant]
  7. LISINOPRIL [Concomitant]
  8. LASIX [Concomitant]
  9. POTASSIUM CHLORIDE [Concomitant]
  10. MORPHINE SULFATE [Concomitant]

REACTIONS (5)
  - CARDIOACTIVE DRUG LEVEL INCREASED [None]
  - CHEST INJURY [None]
  - RIB FRACTURE [None]
  - HAEMOTHORAX [None]
  - PLEURAL HAEMORRHAGE [None]
